FAERS Safety Report 19167225 (Version 1)
Quarter: 2021Q2

REPORT INFORMATION
  Report Type: Spontaneous
  Country: US (occurrence: US)
  Receive Date: 20210422
  Receipt Date: 20210422
  Transmission Date: 20210717
  Serious: Yes (Hospitalization)
  Sender: FDA-Public Use
  Company Number: US-SA-2021SA131328

PATIENT
  Age: 45 Year
  Sex: Male

DRUGS (14)
  1. GABAPENTIN. [Concomitant]
     Active Substance: GABAPENTIN
     Dosage: 300 MG, TID
  2. SODIUM CHLORIDE + DEXTROSE [Concomitant]
     Dosage: 50 UNK, BID
     Route: 042
  3. MONTELUKAST [Concomitant]
     Active Substance: MONTELUKAST SODIUM
     Dosage: 1 DF, HS
     Route: 048
  4. DUPIXENT [Suspect]
     Active Substance: DUPILUMAB
     Dosage: 200 MG
     Dates: end: 202101
  5. PANTOPRAZOLE [Concomitant]
     Active Substance: PANTOPRAZOLE
     Dosage: 1 DF, PRN
  6. ONDANSETRON [ONDANSETRON HYDROCHLORIDE] [Concomitant]
     Active Substance: ONDANSETRON HYDROCHLORIDE
     Dosage: 4 MG 2 ML
     Route: 042
  7. ACETAMINOPHEN DAEJUNG [Concomitant]
     Dosage: 2 DF, Q4H
     Route: 048
  8. DUPIXENT [Suspect]
     Active Substance: DUPILUMAB
     Indication: ASTHMA
     Dosage: 400 MG, TOTAL
     Route: 058
  9. BUSPIRONE [Concomitant]
     Active Substance: BUSPIRONE HYDROCHLORIDE
     Dosage: UNK UNK, TID PRN
     Route: 048
  10. DULERA [Concomitant]
     Active Substance: FORMOTEROL FUMARATE DIHYDRATE\MOMETASONE FUROATE
     Dosage: 100 MCG?5 MCG, 2 PUFFS
     Route: 055
  11. OXYCODONE [Concomitant]
     Active Substance: OXYCODONE
     Dosage: 1 DF, PRN
  12. RAMELTEON [Concomitant]
     Active Substance: RAMELTEON
     Dosage: 1 DF, HS PRN
     Route: 048
  13. FLUTICASONE. [Concomitant]
     Active Substance: FLUTICASONE
     Dosage: 50 UG 2 SPRAY
     Route: 045
  14. SENNA ACUTIFOLIA [Concomitant]
     Dosage: 1 DF, QD PRN
     Route: 048

REACTIONS (6)
  - Productive cough [Unknown]
  - Dyspnoea [Unknown]
  - Chest discomfort [Unknown]
  - Oxygen saturation decreased [Unknown]
  - Asthma [Unknown]
  - Wheezing [Unknown]

NARRATIVE: CASE EVENT DATE: 2021
